FAERS Safety Report 19432128 (Version 2)
Quarter: 2021Q3

REPORT INFORMATION
  Report Type: Report from Study
  Country: US (occurrence: US)
  Receive Date: 20210617
  Receipt Date: 20210921
  Transmission Date: 20211014
  Serious: Yes (Other)
  Sender: FDA-Public Use
  Company Number: US-BIOVITRUM-2020US4975

PATIENT
  Age: 42 Year
  Sex: Female

DRUGS (3)
  1. KINERET [Suspect]
     Active Substance: ANAKINRA
     Indication: PYREXIA
  2. KINERET [Suspect]
     Active Substance: ANAKINRA
     Indication: JUVENILE IDIOPATHIC ARTHRITIS
     Route: 058
     Dates: start: 20190407
  3. KINERET [Suspect]
     Active Substance: ANAKINRA
     Indication: CHRONIC INFANTILE NEUROLOGICAL CUTANEOUS AND ARTICULAR SYNDROME

REACTIONS (27)
  - Oral herpes [Unknown]
  - Fibromyalgia [Unknown]
  - Depression [Unknown]
  - Mitral valve prolapse [Unknown]
  - Dyspnoea [Unknown]
  - Drug hypersensitivity [Unknown]
  - Injection site scar [Unknown]
  - Product dose omission issue [Unknown]
  - Juvenile idiopathic arthritis [Unknown]
  - Nausea [Unknown]
  - Hypothyroidism [Unknown]
  - Dyspepsia [Unknown]
  - Blood iron decreased [Unknown]
  - Anaemia [Unknown]
  - Stress [Unknown]
  - Arthritis [Unknown]
  - Full blood count decreased [Unknown]
  - Sleep disorder [Unknown]
  - Asthenia [Unknown]
  - Gastrooesophageal reflux disease [Unknown]
  - Fatigue [Unknown]
  - Tooth disorder [Unknown]
  - Rash [Recovered/Resolved]
  - Product use complaint [Unknown]
  - Off label use [Not Recovered/Not Resolved]
  - Deafness unilateral [Unknown]
  - Cardiac murmur [Unknown]

NARRATIVE: CASE EVENT DATE: 20190407
